FAERS Safety Report 20626499 (Version 2)
Quarter: 2022Q2

REPORT INFORMATION
  Report Type: Spontaneous
  Country: ES (occurrence: ES)
  Receive Date: 20220323
  Receipt Date: 20220413
  Transmission Date: 20220721
  Serious: Yes (Other)
  Sender: FDA-Public Use
  Company Number: ES-BoehringerIngelheim-2022-BI-159889

PATIENT
  Age: 76 Year
  Sex: Male
  Weight: 76.5 kg

DRUGS (5)
  1. JARDIANCE [Suspect]
     Active Substance: EMPAGLIFLOZIN
     Indication: Diabetes mellitus inadequate control
     Dosage: IN THE MORNING
     Dates: start: 202201, end: 20220318
  2. JANUMET [Concomitant]
     Active Substance: METFORMIN HYDROCHLORIDE\SITAGLIPTIN PHOSPHATE
     Indication: Diabetes mellitus
     Dosage: IN THE MORNING AND IN THE EVENING
  3. GLICLAZIDE [Concomitant]
     Active Substance: GLICLAZIDE
     Indication: Diabetes mellitus
     Dosage: 1 TABLET OF 30 MG IN THE MORNING AND 3 TABLETS OF 30 MG AT MIDDAY
     Dates: end: 20220318
  4. GLICLAZIDE [Concomitant]
     Active Substance: GLICLAZIDE
     Dosage: 4 TABLETS OF 30 MG IN THE MORNING
     Dates: start: 20220318
  5. ASPIRIN [Concomitant]
     Active Substance: ASPIRIN
     Indication: Product used for unknown indication
     Dosage: AT MIDDAY

REACTIONS (4)
  - Tongue neoplasm [Recovered/Resolved with Sequelae]
  - Nocturia [Recovered/Resolved]
  - Pruritus [Not Recovered/Not Resolved]
  - Blood glucose increased [Not Recovered/Not Resolved]

NARRATIVE: CASE EVENT DATE: 20220101
